FAERS Safety Report 7560506-3 (Version None)
Quarter: 2011Q2

REPORT INFORMATION
  Report Type: 
  Country: None (occurrence: None)
  Receive Date: 20110621
  Receipt Date: 20110617
  Transmission Date: 20111010
  Serious: Yes (Disabling, Other)
  Sender: FDA-Public Use
  Company Number: US-MERCK-1006USA02447

PATIENT
  Age: 71 Year
  Sex: Female

DRUGS (2)
  1. FOSAMAX [Suspect]
     Route: 048
     Dates: start: 19991201
  2. FOSAMAX [Suspect]
     Indication: OSTEOPOROSIS
     Route: 048
     Dates: start: 20060522, end: 20081202

REACTIONS (38)
  - DYSGEUSIA [None]
  - PERIODONTITIS [None]
  - WRIST FRACTURE [None]
  - REFLUX LARYNGITIS [None]
  - RADIUS FRACTURE [None]
  - DYSPHAGIA [None]
  - DEAFNESS NEUROSENSORY [None]
  - PERIODONTAL DISEASE [None]
  - SPINAL OSTEOARTHRITIS [None]
  - UPPER-AIRWAY COUGH SYNDROME [None]
  - EDENTULOUS [None]
  - GLAUCOMA [None]
  - ULNA FRACTURE [None]
  - TOOTH DISORDER [None]
  - HIATUS HERNIA [None]
  - PHARYNGEAL POUCH [None]
  - OSTEOPENIA [None]
  - DEVICE FAILURE [None]
  - BONE LOSS [None]
  - LUMBAR SPINAL STENOSIS [None]
  - TOOTH LOSS [None]
  - INFLAMMATION [None]
  - ADVERSE EVENT [None]
  - HYPERSENSITIVITY [None]
  - DRUG HYPERSENSITIVITY [None]
  - IMPAIRED HEALING [None]
  - TOOTH FRACTURE [None]
  - OSTEONECROSIS OF JAW [None]
  - TONSILLAR DISORDER [None]
  - COMPRESSION FRACTURE [None]
  - GINGIVAL BLEEDING [None]
  - COUGH [None]
  - ASPIRATION [None]
  - BONE DISORDER [None]
  - ARTHRITIS [None]
  - INJURY [None]
  - PAIN [None]
  - LOOSE TOOTH [None]
